FAERS Safety Report 23319751 (Version 2)
Quarter: 2023Q4

REPORT INFORMATION
  Report Type: Spontaneous
  Country: SE (occurrence: SE)
  Receive Date: 20231220
  Receipt Date: 20231228
  Transmission Date: 20240109
  Serious: Yes (Life-Threatening, Hospitalization, Other)
  Sender: FDA-Public Use
  Company Number: SE-Accord-396414

PATIENT
  Age: 32 Year
  Sex: Female
  Weight: 85 kg

DRUGS (24)
  1. ONDANSETRON [Suspect]
     Active Substance: ONDANSETRON
     Indication: Nausea
     Dosage: 4 MG , PRO RE NATA (PRN), AS NEEDED
  2. QUETIAPINE FUMARATE [Suspect]
     Active Substance: QUETIAPINE FUMARATE
     Indication: Sleep disorder
  3. OLANZAPINE [Interacting]
     Active Substance: OLANZAPINE
     Indication: Anxiety
     Dosage: 2.5MG TWICE A DAY (BID)
  4. LAMOTRIGINE [Suspect]
     Active Substance: LAMOTRIGINE
     Indication: Psychotic disorder
  5. VENLAFAXINE [Interacting]
     Active Substance: VENLAFAXINE HYDROCHLORIDE
     Indication: Psychotic disorder
  6. ZOLPIDEM [Suspect]
     Active Substance: ZOLPIDEM TARTRATE
     Indication: Sleep disorder
  7. OXAZEPAM [Suspect]
     Active Substance: OXAZEPAM
     Indication: Anxiety
     Dosage: 10 MG AS NEEDED (PRO RE NATA: PRN)
  8. PROMETHAZINE [Suspect]
     Active Substance: PROMETHAZINE HYDROCHLORIDE
     Indication: Anxiety
     Dosage: 25 MG PRO RE NATA (PRN), AS NEEDED
  9. OLANZAPINE [Interacting]
     Active Substance: OLANZAPINE
     Indication: Anxiety
     Dosage: 7.5MG/DAY
  10. OLANZAPINE [Interacting]
     Active Substance: OLANZAPINE
     Indication: Anxiety
     Dosage: 5MG BID
  11. LAMOTRIGINE [Suspect]
     Active Substance: LAMOTRIGINE
     Indication: Psychotic disorder
     Dosage: 50 TO 150 MG/DAY
  12. LAMOTRIGINE [Suspect]
     Active Substance: LAMOTRIGINE
     Indication: Psychotic disorder
  13. LAMOTRIGINE [Suspect]
     Active Substance: LAMOTRIGINE
     Indication: Psychotic disorder
  14. VENLAFAXINE [Interacting]
     Active Substance: VENLAFAXINE HYDROCHLORIDE
     Indication: Psychotic disorder
  15. VENLAFAXINE [Interacting]
     Active Substance: VENLAFAXINE HYDROCHLORIDE
     Indication: Psychotic disorder
  16. VENLAFAXINE [Interacting]
     Active Substance: VENLAFAXINE HYDROCHLORIDE
     Indication: Psychotic disorder
  17. ZOLPIDEM [Suspect]
     Active Substance: ZOLPIDEM TARTRATE
     Indication: Sleep disorder
  18. ZOLPIDEM [Suspect]
     Active Substance: ZOLPIDEM TARTRATE
     Indication: Sleep disorder
  19. OXAZEPAM [Suspect]
     Active Substance: OXAZEPAM
     Indication: Anxiety
     Dosage: 10 MG AS NEEDED (PRO RE NATA: PRN)
  20. OXAZEPAM [Suspect]
     Active Substance: OXAZEPAM
     Indication: Anxiety
     Dosage: 10 MG AS NEEDED (PRO RE NATA: PRN)
  21. ONDANSETRON [Suspect]
     Active Substance: ONDANSETRON
     Dosage: 4 MG , PRO RE NATA (PRN), AS NEEDED
  22. ONDANSETRON [Suspect]
     Active Substance: ONDANSETRON
     Dosage: 4 MG , PRO RE NATA (PRN), AS NEEDED
  23. PROMETHAZINE [Suspect]
     Active Substance: PROMETHAZINE HYDROCHLORIDE
     Indication: Anxiety
     Dosage: 25 MG PRO RE NATA (PRN), AS NEEDED
  24. PROMETHAZINE [Suspect]
     Active Substance: PROMETHAZINE HYDROCHLORIDE
     Indication: Anxiety
     Dosage: 25 MG PRO RE NATA (PRN), AS NEEDED

REACTIONS (11)
  - Exposure during pregnancy [Recovering/Resolving]
  - Fluid retention [Recovered/Resolved]
  - Hypertension [Recovering/Resolving]
  - Pre-eclampsia [Recovering/Resolving]
  - Weight increased [Recovered/Resolved]
  - Oedema peripheral [Recovering/Resolving]
  - Proteinuria [Recovering/Resolving]
  - N-terminal prohormone brain natriuretic peptide increased [Recovering/Resolving]
  - Pleural effusion [Unknown]
  - Drug interaction [Recovering/Resolving]
  - Hypoalbuminaemia [Recovering/Resolving]
